FAERS Safety Report 20836448 (Version 1)
Quarter: 2022Q2

REPORT INFORMATION
  Report Type: Spontaneous
  Country: CA (occurrence: CA)
  Receive Date: 20220517
  Receipt Date: 20220517
  Transmission Date: 20220721
  Serious: Yes (Other)
  Sender: FDA-Public Use
  Company Number: CA-TEVA-2022-CA-2036610

PATIENT
  Sex: Female

DRUGS (3)
  1. ACETAMINOPHEN\OXYCODONE HYDROCHLORIDE [Suspect]
     Active Substance: ACETAMINOPHEN\OXYCODONE HYDROCHLORIDE
     Indication: Pain
     Route: 048
  2. OXYCONTIN [Suspect]
     Active Substance: OXYCODONE HYDROCHLORIDE
     Indication: Pain
     Route: 048
  3. OXYCODONE [Suspect]
     Active Substance: OXYCODONE
     Indication: Product used for unknown indication
     Route: 048

REACTIONS (16)
  - Amnesia [Unknown]
  - Anxiety [Unknown]
  - Chills [Unknown]
  - Decreased appetite [Unknown]
  - Depression [Unknown]
  - Drug dependence [Unknown]
  - Emotional distress [Unknown]
  - Hyperhidrosis [Unknown]
  - Insomnia [Unknown]
  - Memory impairment [Unknown]
  - Panic attack [Unknown]
  - Post-traumatic stress disorder [Unknown]
  - Restlessness [Unknown]
  - Temperature intolerance [Unknown]
  - Tremor [Unknown]
  - Weight decreased [Unknown]
